FAERS Safety Report 13607119 (Version 1)
Quarter: 2017Q2

REPORT INFORMATION
  Report Type: Spontaneous
  Country: CH (occurrence: CH)
  Receive Date: 20170602
  Receipt Date: 20170602
  Transmission Date: 20170830
  Serious: Yes (Other)
  Sender: FDA-Public Use
  Company Number: CH-ROCHE-1942216

PATIENT
  Age: 41 Year
  Sex: Male

DRUGS (8)
  1. CAMPTO [Concomitant]
     Active Substance: IRINOTECAN
     Route: 065
     Dates: start: 201703
  2. PARAPLATIN [Concomitant]
     Active Substance: CARBOPLATIN
     Route: 065
     Dates: start: 20170515
  3. TRITTICO [Suspect]
     Active Substance: TRAZODONE HYDROCHLORIDE
     Indication: PRODUCT USED FOR UNKNOWN INDICATION
     Route: 048
     Dates: start: 201612
  4. TAXOL [Concomitant]
     Active Substance: PACLITAXEL
     Route: 065
     Dates: start: 20170515
  5. KEPPRA [Concomitant]
     Active Substance: LEVETIRACETAM
     Route: 065
     Dates: start: 201601
  6. AVASTIN [Suspect]
     Active Substance: BEVACIZUMAB
     Indication: GLIOBLASTOMA
     Route: 040
     Dates: start: 20161128
  7. CIPRALEX [Suspect]
     Active Substance: ESCITALOPRAM OXALATE
     Indication: PRODUCT USED FOR UNKNOWN INDICATION
     Route: 048
     Dates: start: 201612
  8. DEXAMETHASONE. [Concomitant]
     Active Substance: DEXAMETHASONE
     Route: 065

REACTIONS (1)
  - Hepatocellular injury [Not Recovered/Not Resolved]

NARRATIVE: CASE EVENT DATE: 201612
